FAERS Safety Report 10019341 (Version 1)
Quarter: 2014Q1

REPORT INFORMATION
  Report Type: Spontaneous
  Country: ES (occurrence: ES)
  Receive Date: 20140318
  Receipt Date: 20140318
  Transmission Date: 20141002
  Serious: Yes (Other)
  Sender: FDA-Public Use
  Company Number: ES-WATSON-2014-04764

PATIENT
  Age: 25 Year
  Sex: Female

DRUGS (5)
  1. NABUMETONE (UNKNOWN) [Suspect]
     Indication: PRODUCT USED FOR UNKNOWN INDICATION
     Dosage: 1 G, UNKNOWN
     Route: 065
  2. NABUMETONE (UNKNOWN) [Suspect]
     Dosage: 250 MG, SINGLE
     Route: 048
  3. NABUMETONE (UNKNOWN) [Suspect]
     Dosage: 500 MG, SINGLE
     Route: 048
  4. NABUMETONE (UNKNOWN) [Suspect]
     Dosage: 1000 MG, SINGLE
     Route: 048
  5. TETRAZEPAM [Concomitant]
     Indication: PRODUCT USED FOR UNKNOWN INDICATION
     Dosage: UNK
     Route: 065

REACTIONS (2)
  - Urticaria [Recovered/Resolved]
  - Angioedema [Recovered/Resolved]
